FAERS Safety Report 6725298-6 (Version None)
Quarter: 2010Q2

REPORT INFORMATION
  Report Type: 
  Country: None (occurrence: None)
  Receive Date: 20100513
  Receipt Date: 20100513
  Transmission Date: 20101027
  Serious: Yes (Other)
  Sender: FDA-Public Use
  Company Number: None

PATIENT
  Sex: Female
  Weight: 74.8435 kg

DRUGS (1)
  1. ACTONEL [Suspect]
     Dosage: 150 MG 1 MO.

REACTIONS (10)
  - ABDOMINAL DISCOMFORT [None]
  - CHILLS [None]
  - EAR DISCOMFORT [None]
  - EAR INFECTION [None]
  - INFLUENZA [None]
  - MALAISE [None]
  - MYALGIA [None]
  - SINUSITIS [None]
  - VITAMIN C DECREASED [None]
  - VITAMIN D DECREASED [None]
